FAERS Safety Report 11431954 (Version 2)
Quarter: 2015Q4

REPORT INFORMATION
  Report Type: Report from Study
  Country: US (occurrence: US)
  Receive Date: 20150828
  Receipt Date: 20151009
  Transmission Date: 20160304
  Serious: Yes (Hospitalization)
  Sender: FDA-Public Use
  Company Number: US-MALLINCKRODT-T201503981

PATIENT
  Age: 75 Year
  Sex: Male

DRUGS (1)
  1. REPOSITORY CORTICOTROPIN INJECTION [Suspect]
     Active Substance: CORTICOTROPIN
     Indication: SARCOIDOSIS
     Dosage: 80 UNITS THREE TIMES A WEEK
     Route: 030
     Dates: start: 20150612, end: 20150810

REACTIONS (8)
  - White blood cell count increased [Unknown]
  - Chills [Unknown]
  - Hypotension [Recovering/Resolving]
  - Syncope [Recovering/Resolving]
  - Pneumonia [Unknown]
  - Chest pain [Recovering/Resolving]
  - Pyrexia [Unknown]
  - Pericardial effusion [Recovering/Resolving]

NARRATIVE: CASE EVENT DATE: 201508
